FAERS Safety Report 8901939 (Version 1)
Quarter: 2012Q4

REPORT INFORMATION
  Report Type: Spontaneous
  Country: US (occurrence: None)
  Receive Date: 20121109
  Receipt Date: 20121109
  Transmission Date: 20130627
  Serious: Yes (Disabling, Other)
  Sender: FDA-Public Use
  Company Number: None

PATIENT
  Sex: Male
  Weight: 113.4 kg

DRUGS (1)
  1. MEFLOQUINE [Suspect]
     Indication: PROPHYLAXIS
     Dosage: Standard military dose in week per week po
     Route: 048
     Dates: start: 20030115, end: 20081030

REACTIONS (14)
  - Abnormal dreams [None]
  - Nightmare [None]
  - Myalgia [None]
  - Arthralgia [None]
  - Deafness [None]
  - Memory impairment [None]
  - Hyperacusis [None]
  - Ill-defined disorder [None]
  - Discomfort [None]
  - Fatigue [None]
  - Depression [None]
  - Anxiety [None]
  - Headache [None]
  - Sensory disturbance [None]
